FAERS Safety Report 14544568 (Version 3)
Quarter: 2018Q1

REPORT INFORMATION
  Report Type: Spontaneous
  Country: JP (occurrence: JP)
  Receive Date: 20180217
  Receipt Date: 20180328
  Transmission Date: 20180509
  Serious: Yes (Life-Threatening, Other)
  Sender: FDA-Public Use
  Company Number: JP-ROCHE-2074508

PATIENT
  Age: 70 Year
  Sex: Female
  Weight: 38 kg

DRUGS (7)
  1. AVASTIN [Suspect]
     Active Substance: BEVACIZUMAB
     Indication: LUNG ADENOCARCINOMA
     Route: 041
     Dates: start: 20160912, end: 20161027
  2. OXYCONTIN [Concomitant]
     Active Substance: OXYCODONE HYDROCHLORIDE
     Dosage: DOSAGE IS UNCERTAIN.
     Route: 065
     Dates: start: 20160909, end: 20161113
  3. PEMETREXED SODIUM HYDRATE [Suspect]
     Active Substance: PEMETREXED
     Indication: LUNG ADENOCARCINOMA
     Route: 041
     Dates: start: 20160912, end: 20161027
  4. NIVOLUMAB [Concomitant]
     Active Substance: NIVOLUMAB
     Dosage: SECOND-LINE THERAPY.
     Route: 065
  5. CISPLATIN. [Suspect]
     Active Substance: CISPLATIN
     Indication: LUNG ADENOCARCINOMA
     Route: 041
     Dates: start: 20160912, end: 20161027
  6. VOLTAREN [Suspect]
     Active Substance: DICLOFENAC SODIUM
     Indication: PRODUCT USED FOR UNKNOWN INDICATION
     Route: 054
     Dates: start: 20161111, end: 20161111
  7. CALONAL [Concomitant]
     Active Substance: ACETAMINOPHEN
     Dosage: DOSAGE IS UNCERTAIN.
     Route: 065
     Dates: start: 20160909, end: 20161113

REACTIONS (4)
  - Spinal compression fracture [Unknown]
  - Small intestinal perforation [Recovered/Resolved]
  - Back pain [Unknown]
  - Intestinal metastasis [Unknown]

NARRATIVE: CASE EVENT DATE: 20161107
